FAERS Safety Report 7353802-6 (Version None)
Quarter: 2011Q1

REPORT INFORMATION
  Report Type: 
  Country: None (occurrence: None)
  Receive Date: 20110315
  Receipt Date: 20101029
  Transmission Date: 20110831
  Serious: No
  Sender: FDA-Public Use
  Company Number: US-BAYER-201023276BCC

PATIENT
  Sex: Male
  Weight: 112.47 kg

DRUGS (1)
  1. ALEVE [Suspect]
     Indication: GOUT
     Dosage: COUNT BOTTLE 100S
     Dates: start: 20090101

REACTIONS (1)
  - GOUT [None]
